FAERS Safety Report 7218073-X (Version None)
Quarter: 2011Q1

REPORT INFORMATION
  Report Type: 
  Country: None (occurrence: None)
  Receive Date: 20110110
  Receipt Date: 20110105
  Transmission Date: 20110831
  Serious: Yes (Other)
  Sender: FDA-Public Use
  Company Number: US-BAXTER-2011BH000256

PATIENT

DRUGS (15)
  1. MIDAZOLAM HCL [Concomitant]
     Indication: INDUCTION OF ANAESTHESIA
     Route: 042
  2. PANCURONIUM [Concomitant]
     Indication: HYPOTONIA
     Route: 065
  3. PHENTOLAMINE MESYLATE [Concomitant]
     Indication: CARDIAC OPERATION
     Route: 065
  4. HEPARIN [Suspect]
     Dosage: DOSE UNIT:UNITS PER KILOGRAM
     Route: 065
  5. FENTANYL [Concomitant]
     Indication: ANALGESIC THERAPY
     Route: 065
  6. MANNITOL [Concomitant]
     Indication: CARDIAC OPERATION
     Route: 065
  7. HEPARIN [Suspect]
     Indication: CARDIAC OPERATION
     Route: 065
  8. ELECTROLYTE SOLUTIONS [Concomitant]
     Indication: CARDIAC OPERATION
     Route: 065
  9. CALCIUM GLUCONATE [Concomitant]
     Indication: CARDIAC OPERATION
     Route: 040
  10. DOPAMINE [Concomitant]
     Indication: CARDIAC OPERATION
     Route: 042
  11. ISOLYTE S [Concomitant]
     Indication: CARDIAC OPERATION
     Route: 065
  12. KETAMINE [Concomitant]
     Indication: INDUCTION OF ANAESTHESIA
     Route: 042
  13. RED BLOOD CELLS, CONCENTRATED [Concomitant]
     Indication: HAEMATOCRIT ABNORMAL
     Route: 065
  14. PROTAMINE SULFATE [Concomitant]
     Indication: HEPARIN NEUTRALISATION THERAPY
     Route: 065
  15. ALBUMIN (HUMAN) [Concomitant]
     Indication: CARDIAC OPERATION
     Route: 065

REACTIONS (1)
  - HAEMORRHAGE INTRACRANIAL [None]
